FAERS Safety Report 22050360 (Version 2)
Quarter: 2023Q4

REPORT INFORMATION
  Report Type: Spontaneous
  Country: US (occurrence: None)
  Receive Date: 20230301
  Receipt Date: 20231012
  Transmission Date: 20240109
  Serious: Yes (Other)
  Sender: FDA-Public Use
  Company Number: 2023A044818

PATIENT
  Age: 19471 Day
  Sex: Male
  Weight: 99.3 kg

DRUGS (32)
  1. PRILOSEC OTC [Suspect]
     Active Substance: OMEPRAZOLE MAGNESIUM
     Indication: Dyspepsia
     Dosage: VARIOUS DATES AND YEARS INCLUDING BUT NOT LIMITED TO BEGINNING AT LEAST APPROXIMATELY 2002 THROUG...
     Route: 048
     Dates: start: 2000, end: 2020
  2. PRILOSEC OTC [Suspect]
     Active Substance: OMEPRAZOLE MAGNESIUM
     Indication: Gastrooesophageal reflux disease
     Dosage: VARIOUS DATES AND YEARS INCLUDING BUT NOT LIMITED TO BEGINNING AT LEAST APPROXIMATELY 2002 THROUG...
     Route: 048
     Dates: start: 2000, end: 2020
  3. PRILOSEC OTC [Suspect]
     Active Substance: OMEPRAZOLE MAGNESIUM
     Indication: Dyspepsia
     Dosage: VARIOUS DATES AND YEARS INCLUDING BUT NOT LIMITED TO BEGINNING AT LEAST APPROXIMATELY 2002 THROUG...
     Route: 048
     Dates: start: 2000, end: 2020
  4. PRILOSEC OTC [Suspect]
     Active Substance: OMEPRAZOLE MAGNESIUM
     Indication: Dyspepsia
     Route: 048
     Dates: start: 2003, end: 2020
  5. PRILOSEC OTC [Suspect]
     Active Substance: OMEPRAZOLE MAGNESIUM
     Indication: Gastrooesophageal reflux disease
     Route: 048
     Dates: start: 2003, end: 2020
  6. PRILOSEC OTC [Suspect]
     Active Substance: OMEPRAZOLE MAGNESIUM
     Indication: Dyspepsia
     Route: 048
     Dates: start: 2003, end: 2020
  7. PRILOSEC OTC [Suspect]
     Active Substance: OMEPRAZOLE MAGNESIUM
     Indication: Dyspepsia
     Route: 048
     Dates: start: 20030101, end: 20030113
  8. PRILOSEC OTC [Suspect]
     Active Substance: OMEPRAZOLE MAGNESIUM
     Indication: Gastrooesophageal reflux disease
     Route: 048
     Dates: start: 20030101, end: 20030113
  9. PRILOSEC OTC [Suspect]
     Active Substance: OMEPRAZOLE MAGNESIUM
     Indication: Dyspepsia
     Route: 048
     Dates: start: 20030101, end: 20030113
  10. PANTOPRAZOLE [Suspect]
     Active Substance: PANTOPRAZOLE
     Indication: Dyspepsia
     Dates: start: 20160308
  11. VALSARTAN [Concomitant]
     Active Substance: VALSARTAN
     Indication: Blood pressure abnormal
     Dates: start: 20210503
  12. ULTRAM/TRAMADOL [Concomitant]
     Indication: Pain
     Dates: start: 20211102, end: 20211117
  13. ERYTHROMYCIN [Concomitant]
     Active Substance: ERYTHROMYCIN
     Indication: Infection
     Dates: start: 20210901, end: 20211009
  14. ACETARSOL/NYSTATIN/NEOMYCIN/POLYMYXIN B SULFATE [Concomitant]
     Indication: Infection
     Dates: start: 20210929, end: 20211009
  15. AMOXICILLIN [Concomitant]
     Active Substance: AMOXICILLIN
     Indication: Infection
     Dosage: TO BE SUPPLEMENTTED LATER
     Dates: start: 2014
  16. LIPITOR [Concomitant]
     Active Substance: ATORVASTATIN CALCIUM
     Indication: Blood cholesterol increased
     Dosage: ????2010 TO BE SUPPLEMENTED AT LATER DATE
     Dates: start: 2010
  17. PLAVIX [Concomitant]
     Active Substance: CLOPIDOGREL BISULFATE
     Indication: Anticoagulant therapy
     Dosage: ????2008 TO BE SUPPLEMENTED LATER
     Dates: start: 2008
  18. PROZ [Concomitant]
     Indication: Antibiotic therapy
     Dosage: ????2008 TO BE SUPPLEMENTED AT LATER DATE
     Dates: start: 2008
  19. LASIX/FUROSEMIDE [Concomitant]
     Indication: Diuretic therapy
     Dosage: TO BE SUPPLEMENTED AT A LATER DATE
  20. DILANTIN/PHENYTOIN [Concomitant]
     Indication: Anticonvulsant drug level therapeutic
     Dosage: TO BE SUPPLMENTED AT THE LATER DATE
  21. ZANTAC [Concomitant]
     Active Substance: RANITIDINE HYDROCHLORIDE
     Dosage: TO BE SUPPLEMENTED AT A LATER DATE
  22. BUPROPION [Concomitant]
     Active Substance: BUPROPION
     Dosage: TO BE SUPPLEMENTED AT A LATER DATE
  23. VIAGRA [Concomitant]
     Active Substance: SILDENAFIL CITRATE
     Dosage: TO BE SUPPLEMENTED AT A LATER DATE
  24. PROMETHAZINE [Concomitant]
     Active Substance: PROMETHAZINE HYDROCHLORIDE
     Dosage: TO BE SUPPLEMENTED AT A LATER DATE
  25. ALBUTEROL [Concomitant]
     Active Substance: ALBUTEROL
     Dosage: TO BE SUPPLEMENTED AT A LATER DATE
  26. DIPHENHYDRAMINE [Concomitant]
     Active Substance: DIPHENHYDRAMINE
     Dosage: TO BE SUPPLEMENTED AT A LATER DATE
  27. EPINEPHRINE [Concomitant]
     Active Substance: EPINEPHRINE
     Dosage: TO BE SUPPLEMENTED AT A LATER DATE
  28. NALOXONE [Concomitant]
     Active Substance: NALOXONE
     Dosage: TO BE SUPPLEMENTED AT A LATER DATE
  29. NITROGLYCERIN [Concomitant]
     Active Substance: NITROGLYCERIN
     Dosage: TO BE SUPPLEMENTED AT A LATER DATE
  30. FERROUS SULFATE [Concomitant]
     Active Substance: FERROUS SULFATE
     Dosage: TO BE SUPPLEMENTED AT A LATER DATE
  31. IPRAGLIFLOZIN L-PROLINE/SITAGLIPTIN PHOSPHATE MONOHYDRATE [Concomitant]
     Dosage: TO BE SUPPLEMENTED AT A LATER DATE
  32. OXYCODONE [Concomitant]
     Active Substance: OXYCODONE
     Dosage: TO BE SUPPLEMENTED AT A LATER DATE

REACTIONS (4)
  - Acute kidney injury [Not Recovered/Not Resolved]
  - Renal failure [Unknown]
  - Gastric cancer [Not Recovered/Not Resolved]
  - Rebound acid hypersecretion [Unknown]

NARRATIVE: CASE EVENT DATE: 20190701
